FAERS Safety Report 7912679-8 (Version None)
Quarter: 2011Q4

REPORT INFORMATION
  Report Type: 
  Country: None (occurrence: None)
  Receive Date: 20111114
  Receipt Date: 20111107
  Transmission Date: 20120403
  Serious: Yes (Death)
  Sender: FDA-Public Use
  Company Number: BR-MEDIMMUNE-MEDI-0013857

PATIENT
  Sex: Female
  Weight: 3.64 kg

DRUGS (4)
  1. CAPTOPRIL [Concomitant]
     Route: 048
  2. SYNAGIS [Suspect]
     Indication: HEART DISEASE CONGENITAL
     Route: 030
     Dates: start: 20110518, end: 20110713
  3. ALL OTHER THERAPEUTIC PRODUCTS [Suspect]
     Indication: PNEUMONIA
  4. FUROSEMIDE [Concomitant]
     Route: 048

REACTIONS (7)
  - PNEUMONIA [None]
  - PYREXIA [None]
  - INCREASED BRONCHIAL SECRETION [None]
  - PALPITATIONS [None]
  - CRYING [None]
  - HYPERHIDROSIS [None]
  - FATIGUE [None]
